FAERS Safety Report 8087484-5 (Version None)
Quarter: 2012Q1

REPORT INFORMATION
  Report Type: 
  Country: None (occurrence: None)
  Receive Date: 20120128
  Receipt Date: 20110502
  Transmission Date: 20120608
  Serious: No
  Sender: FDA-Public Use
  Company Number: US-ABBOTT-11P-163-0722958-00

PATIENT
  Age: 58 Year
  Sex: Female

DRUGS (10)
  1. METHOTREXATE [Concomitant]
     Indication: PRODUCT USED FOR UNKNOWN INDICATION
  2. PREDNISONE TAB [Concomitant]
     Indication: PRODUCT USED FOR UNKNOWN INDICATION
  3. LISINOPRIL [Concomitant]
     Indication: BLOOD PRESSURE
  4. FOLIC ACID [Concomitant]
     Indication: PRODUCT USED FOR UNKNOWN INDICATION
  5. HUMIRA [Suspect]
     Indication: RHEUMATOID ARTHRITIS
     Dates: start: 20110418
  6. CLONAZEPAM [Concomitant]
     Indication: DEPRESSION
  7. OXYCODONE HCL AND ACETAMINOPHEN [Concomitant]
     Indication: PAIN
  8. SEROQUEL [Concomitant]
     Indication: INSOMNIA
  9. OMEPRAZOLE [Concomitant]
     Indication: GASTROOESOPHAGEAL REFLUX DISEASE
  10. BONIVA [Concomitant]
     Indication: PRODUCT USED FOR UNKNOWN INDICATION

REACTIONS (3)
  - THYROID DISORDER [None]
  - OROPHARYNGEAL PAIN [None]
  - NODULE [None]
